FAERS Safety Report 9304868 (Version 1)
Quarter: 2013Q2

REPORT INFORMATION
  Report Type: Report from Study
  Country: US (occurrence: US)
  Receive Date: 20130523
  Receipt Date: 20130523
  Transmission Date: 20140414
  Serious: Yes (Hospitalization)
  Sender: FDA-Public Use
  Company Number: US-MYLANLABS-2013S1010603

PATIENT
  Sex: Female

DRUGS (3)
  1. NEVIRAPINE [Suspect]
     Indication: HIV INFECTION
     Dosage: ONCE DAILY FOR 2W; THEN TWICE DAILY
     Route: 065
  2. NEVIRAPINE [Suspect]
     Indication: HIV INFECTION
     Dosage: TWICE DAILY
     Route: 065
  3. COTRIMOXAZOLE [Concomitant]
     Route: 065

REACTIONS (3)
  - Rash papular [Recovered/Resolved]
  - Mouth ulceration [Unknown]
  - Conjunctival hyperaemia [Unknown]
